FAERS Safety Report 18368372 (Version 1)
Quarter: 2020Q4

REPORT INFORMATION
  Report Type: Spontaneous
  Country: US (occurrence: US)
  Receive Date: 20201009
  Receipt Date: 20201009
  Transmission Date: 20210114
  Serious: Yes (Other)
  Sender: FDA-Public Use
  Company Number: US-PURDUE-USA-2020-0169257

PATIENT
  Age: 17 Year
  Sex: Male

DRUGS (2)
  1. LORTAB [Suspect]
     Active Substance: ACETAMINOPHEN\HYDROCODONE BITARTRATE
     Indication: INJURY
     Dosage: UNK
     Route: 065
     Dates: start: 20060926
  2. OXYCONTIN [Suspect]
     Active Substance: OXYCODONE HYDROCHLORIDE
     Indication: PRODUCT USED FOR UNKNOWN INDICATION
     Route: 048

REACTIONS (6)
  - Drug dependence [Unknown]
  - Overdose [Unknown]
  - Cardiac disorder [Unknown]
  - Developmental delay [Unknown]
  - Personality change [Unknown]
  - Learning disability [Unknown]

NARRATIVE: CASE EVENT DATE: 2009
